FAERS Safety Report 12736068 (Version 3)
Quarter: 2017Q1

REPORT INFORMATION
  Report Type: Spontaneous
  Country: AR (occurrence: AR)
  Receive Date: 20160912
  Receipt Date: 20170228
  Transmission Date: 20170428
  Serious: Yes (Other)
  Sender: FDA-Public Use
  Company Number: AR-PFIZER INC-2016422431

PATIENT
  Age: 55 Year
  Sex: Female

DRUGS (4)
  1. SOMAVERT [Suspect]
     Active Substance: PEGVISOMANT
     Indication: ACROMEGALY
     Dosage: UNK, 7 PER WEEK
     Dates: start: 20070402
  2. SOMAVERT [Suspect]
     Active Substance: PEGVISOMANT
     Dosage: 40 MG, UNK
  3. SOMAVERT [Suspect]
     Active Substance: PEGVISOMANT
     Dosage: UNK, ALTERNATE DAY
     Dates: start: 2017
  4. SOMAVERT [Suspect]
     Active Substance: PEGVISOMANT
     Dosage: UNK, INCREASED INTERVAL INTERVAL BETWEEN MEDICATION INTAKE
     Dates: start: 20170220

REACTIONS (11)
  - Hormone level abnormal [Recovering/Resolving]
  - Blindness [Not Recovered/Not Resolved]
  - Rash [Recovered/Resolved]
  - Depression [Not Recovered/Not Resolved]
  - Type 2 diabetes mellitus [Not Recovered/Not Resolved]
  - Deafness [Not Recovered/Not Resolved]
  - Diverticulitis [Not Recovered/Not Resolved]
  - Anxiety [Not Recovered/Not Resolved]
  - Intentional product misuse [Unknown]
  - Muscle contracture [Not Recovered/Not Resolved]
  - Hypersensitivity [Recovered/Resolved]

NARRATIVE: CASE EVENT DATE: 2009
